FAERS Safety Report 14299619 (Version 6)
Quarter: 2022Q3

REPORT INFORMATION
  Report Type: Spontaneous
  Country: US (occurrence: None)
  Receive Date: 20171219
  Receipt Date: 20220826
  Transmission Date: 20221027
  Serious: Yes (Other)
  Sender: FDA-Public Use
  Company Number: 2017SF27469

PATIENT
  Age: 24567 Day
  Sex: Female
  Weight: 63.5 kg

DRUGS (64)
  1. NEXIUM [Suspect]
     Active Substance: ESOMEPRAZOLE MAGNESIUM
     Indication: Gastrooesophageal reflux disease
     Route: 048
     Dates: start: 2000
  2. NEXIUM [Suspect]
     Active Substance: ESOMEPRAZOLE MAGNESIUM
     Indication: Gastrooesophageal reflux disease
     Route: 048
     Dates: start: 2009, end: 2016
  3. NEXIUM [Suspect]
     Active Substance: ESOMEPRAZOLE MAGNESIUM
     Indication: Gastrooesophageal reflux disease
     Route: 048
     Dates: start: 20110107
  4. NEXIUM [Suspect]
     Active Substance: ESOMEPRAZOLE MAGNESIUM
     Indication: Gastrooesophageal reflux disease
     Route: 048
     Dates: start: 2015
  5. NEXIUM 24HR [Suspect]
     Active Substance: ESOMEPRAZOLE MAGNESIUM
     Indication: Gastrooesophageal reflux disease
     Dosage: 22.3 MG
     Route: 048
  6. PROTONIX [Suspect]
     Active Substance: PANTOPRAZOLE SODIUM
     Indication: Gastrooesophageal reflux disease
     Route: 065
     Dates: start: 2009, end: 2016
  7. PROTONIX [Suspect]
     Active Substance: PANTOPRAZOLE SODIUM
     Indication: Gastrooesophageal reflux disease
     Route: 065
     Dates: start: 2015
  8. PREVACID [Suspect]
     Active Substance: LANSOPRAZOLE
     Indication: Gastrooesophageal reflux disease
     Route: 065
     Dates: start: 2009, end: 2016
  9. PREVACID [Suspect]
     Active Substance: LANSOPRAZOLE
     Indication: Gastrooesophageal reflux disease
     Route: 065
     Dates: start: 20110107
  10. PREVACID 24 HR [Suspect]
     Active Substance: LANSOPRAZOLE
     Indication: Gastrooesophageal reflux disease
     Route: 065
     Dates: start: 2009, end: 2016
  11. PREVACID 24 HR [Suspect]
     Active Substance: LANSOPRAZOLE
     Indication: Gastrooesophageal reflux disease
     Route: 065
     Dates: start: 20110107
  12. ESCITALOPRAM OXALATE [Concomitant]
     Active Substance: ESCITALOPRAM OXALATE
  13. CARVEDILOL [Concomitant]
     Active Substance: CARVEDILOL
  14. PANTOPRAZOLE SODIUM [Concomitant]
     Active Substance: PANTOPRAZOLE SODIUM
  15. CRESTOR [Concomitant]
     Active Substance: ROSUVASTATIN CALCIUM
  16. RANITIDINE HYDROCHLORIDE [Concomitant]
     Active Substance: RANITIDINE HYDROCHLORIDE
  17. TRAMADOL HCL [Concomitant]
     Active Substance: TRAMADOL HYDROCHLORIDE
  18. METFORMIN HYDROCHLORIDE [Concomitant]
     Active Substance: METFORMIN HYDROCHLORIDE
     Dates: start: 20080422
  19. CLOPIDOGREL BISULFATE [Concomitant]
     Active Substance: CLOPIDOGREL BISULFATE
     Indication: Anticoagulant therapy
  20. CEFADROXIL [Concomitant]
     Active Substance: CEFADROXIL
  21. FLUTICASONE PROPIONATE [Concomitant]
     Active Substance: FLUTICASONE PROPIONATE
  22. CLOBETASOL [Concomitant]
     Active Substance: CLOBETASOL
  23. PREDNISOLONE ACETATE [Concomitant]
     Active Substance: PREDNISOLONE ACETATE
  24. KETOROLAC [Concomitant]
     Active Substance: KETOROLAC TROMETHAMINE
  25. AMMONIUM LACTATE [Concomitant]
     Active Substance: AMMONIUM LACTATE
  26. BENZONATATE [Concomitant]
     Active Substance: BENZONATATE
  27. PREDNISONE [Concomitant]
     Active Substance: PREDNISONE
  28. NITROSTAT [Concomitant]
     Active Substance: NITROGLYCERIN
  29. FLUZONE [Concomitant]
     Active Substance: INFLUENZA A VIRUS A/CALIFORNIA/7/2009 X-179A (H1N1) ANTIGEN (FORMALDEHYDE INACTIVATED)\INFLUENZA A V
  30. ESCITALOPRAM [Concomitant]
     Active Substance: ESCITALOPRAM OXALATE
  31. NITROFURANTOIN [Concomitant]
     Active Substance: NITROFURANTOIN
  32. METOPROLOL SUCCINATE [Concomitant]
     Active Substance: METOPROLOL SUCCINATE
     Dates: start: 20110106
  33. LISINOPRIL [Concomitant]
     Active Substance: LISINOPRIL
  34. SIMVASTATIN [Concomitant]
     Active Substance: SIMVASTATIN
  35. CIPROFLOXACIN HYDROCHLORIDE [Concomitant]
     Active Substance: CIPROFLOXACIN HYDROCHLORIDE
  36. CEPHALEXIN [Concomitant]
     Active Substance: CEPHALEXIN
  37. WELCHOL [Concomitant]
     Active Substance: COLESEVELAM HYDROCHLORIDE
  38. QUETIAPINE FUMARATE [Concomitant]
     Active Substance: QUETIAPINE FUMARATE
  39. VESICARE [Concomitant]
     Active Substance: SOLIFENACIN SUCCINATE
  40. PRAVASTATIN SODIUM [Concomitant]
     Active Substance: PRAVASTATIN SODIUM
  41. MYRBETRIQ [Concomitant]
     Active Substance: MIRABEGRON
  42. SUCRALFATE [Concomitant]
     Active Substance: SUCRALFATE
  43. HYDROCODONE [Concomitant]
     Active Substance: HYDROCODONE
  44. ACETAMINOPHEN [Concomitant]
     Active Substance: ACETAMINOPHEN
  45. NAPROXEN SODIUM [Concomitant]
     Active Substance: NAPROXEN SODIUM
  46. CYCLOBENZAPRINE HYDROCHLORIDE [Concomitant]
     Active Substance: CYCLOBENZAPRINE HYDROCHLORIDE
  47. SERTRALINE HYDROCHLORIDE [Concomitant]
     Active Substance: SERTRALINE HYDROCHLORIDE
  48. DIAZEPAM [Concomitant]
     Active Substance: DIAZEPAM
  49. GABAPENTIN [Concomitant]
     Active Substance: GABAPENTIN
     Dates: start: 20100622
  50. LEVOFLOXACIN [Concomitant]
     Active Substance: LEVOFLOXACIN
  51. ASPIRIN [Concomitant]
     Active Substance: ASPIRIN
  52. NICOREST [Concomitant]
  53. LIOTHYRONINE SODIUM/LEVOTHYROXINE SODIUM [Concomitant]
  54. HYDROCORTISONE [Concomitant]
     Active Substance: HYDROCORTISONE
  55. NIZATIDINE [Concomitant]
     Active Substance: NIZATIDINE
  56. RANITIDINE [Concomitant]
     Active Substance: RANITIDINE
  57. TUMS [Concomitant]
     Active Substance: CALCIUM CARBONATE
  58. TRAZODONE [Concomitant]
     Active Substance: TRAZODONE HYDROCHLORIDE
  59. ALKA-SELTZER [Concomitant]
     Active Substance: ANHYDROUS CITRIC ACID\ASPIRIN\SODIUM BICARBONATE
  60. PEPTO-BISMOL [Concomitant]
     Active Substance: BISMUTH SUBSALICYLATE
  61. ATORVASTATIN [Concomitant]
     Active Substance: ATORVASTATIN
  62. FERROUS SULFATE [Concomitant]
     Active Substance: FERROUS SULFATE
  63. VITAMINS [Concomitant]
     Active Substance: VITAMINS
  64. PLAVIX [Concomitant]
     Active Substance: CLOPIDOGREL BISULFATE
     Indication: Anticoagulant therapy

REACTIONS (5)
  - Chronic kidney disease [Not Recovered/Not Resolved]
  - Renal injury [Unknown]
  - Renal failure [Not Recovered/Not Resolved]
  - Acute kidney injury [Unknown]
  - Depression [Unknown]

NARRATIVE: CASE EVENT DATE: 20151116
